FAERS Safety Report 6329467-9 (Version None)
Quarter: 2009Q3

REPORT INFORMATION
  Report Type: 
  Country: None (occurrence: None)
  Receive Date: 20090826
  Receipt Date: 20090817
  Transmission Date: 20100115
  Serious: Yes (Other)
  Sender: FDA-Public Use
  Company Number: US-JNJFOC-20090602884

PATIENT
  Sex: Female
  Weight: 93.9 kg

DRUGS (6)
  1. REMICADE [Suspect]
     Route: 042
  2. REMICADE [Suspect]
     Indication: RHEUMATOID ARTHRITIS
     Dosage: HAD 3 VIALS
     Route: 042
  3. METHOTREXATE SODIUM [Concomitant]
     Indication: PAIN
  4. METOPROLOL [Concomitant]
  5. EFFEXOR [Concomitant]
  6. PERCOCET [Concomitant]

REACTIONS (7)
  - ANXIETY [None]
  - ARTHROPATHY [None]
  - DRUG INEFFECTIVE [None]
  - DYSPEPSIA [None]
  - FIBROMYALGIA [None]
  - METHICILLIN-RESISTANT STAPHYLOCOCCAL AUREUS TEST POSITIVE [None]
  - NAUSEA [None]
